FAERS Safety Report 11517054 (Version 1)
Quarter: 2015Q3

REPORT INFORMATION
  Report Type: Spontaneous
  Country: US (occurrence: None)
  Receive Date: 20150916
  Receipt Date: 20150916
  Transmission Date: 20151125
  Serious: Yes (Other)
  Sender: FDA-Public Use
  Company Number: None

PATIENT
  Age: 54 Year
  Sex: Female
  Weight: 86.18 kg

DRUGS (7)
  1. ALLOPURINOL. [Concomitant]
     Active Substance: ALLOPURINOL
  2. ATIVAN [Concomitant]
     Active Substance: LORAZEPAM
  3. LOSARTAN. [Concomitant]
     Active Substance: LOSARTAN
  4. BABY ASPIRIN [Concomitant]
     Active Substance: ASPIRIN
  5. METFORMIN [Concomitant]
     Active Substance: METFORMIN HYDROCHLORIDE
  6. TRADJENTA [Concomitant]
     Active Substance: LINAGLIPTIN
  7. VERAPAMIL [Suspect]
     Active Substance: VERAPAMIL HYDROCHLORIDE
     Indication: HYPERTENSION
     Dosage: 1 PILL TWICE DAILY TAKEN BY MOUTH
     Route: 048

REACTIONS (1)
  - Alopecia [None]

NARRATIVE: CASE EVENT DATE: 20150819
